FAERS Safety Report 6835546-X (Version None)
Quarter: 2010Q3

REPORT INFORMATION
  Report Type: 
  Country: None (occurrence: None)
  Receive Date: 20100713
  Receipt Date: 20100702
  Transmission Date: 20110219
  Serious: Yes (Other)
  Sender: FDA-Public Use
  Company Number: PHHO2010CZ10024

PATIENT

DRUGS (5)
  1. BLINDED ALISKIREN ALI+TAB+CF [Suspect]
     Indication: CARDIAC FAILURE
  2. BLINDED ENALAPRIL COMP-ENA+ [Suspect]
     Indication: CARDIAC FAILURE
  3. BLINDED NO TREATMENT RECEIVED NOMED [Suspect]
     Indication: CARDIAC FAILURE
  4. ALISKIREN [Suspect]
     Indication: CARDIAC FAILURE
     Dosage: UNK
  5. COMPARATOR ENALAPRIL [Suspect]
     Indication: CARDIAC FAILURE

REACTIONS (1)
  - DYSPNOEA [None]
